FAERS Safety Report 7990742-3 (Version None)
Quarter: 2011Q4

REPORT INFORMATION
  Report Type: 
  Country: None (occurrence: None)
  Receive Date: 20111219
  Receipt Date: 20111219
  Transmission Date: 20120403
  Serious: Yes (Other)
  Sender: FDA-Public Use
  Company Number: None

PATIENT
  Age: 51 Year
  Sex: Female
  Weight: 92.532 kg

DRUGS (1)
  1. METFORMIN HYDROCHLORIDE [Suspect]
     Indication: TYPE 2 DIABETES MELLITUS
     Dosage: 1000MG
     Route: 048
     Dates: start: 20111206, end: 20111215

REACTIONS (7)
  - HEADACHE [None]
  - BLOOD GLUCOSE ABNORMAL [None]
  - VOMITING [None]
  - PRODUCT SOLUBILITY ABNORMAL [None]
  - DIZZINESS [None]
  - PRODUCT SIZE ISSUE [None]
  - WRONG TECHNIQUE IN DRUG USAGE PROCESS [None]
